FAERS Safety Report 14188474 (Version 3)
Quarter: 2018Q2

REPORT INFORMATION
  Report Type: Spontaneous
  Country: FR (occurrence: FR)
  Receive Date: 20171114
  Receipt Date: 20180413
  Transmission Date: 20180711
  Serious: Yes (Other)
  Sender: FDA-Public Use
  Company Number: FR-MERCK KGAA-2034044

PATIENT
  Age: 67 Year
  Sex: Female

DRUGS (1)
  1. NOVOTHYROX [Suspect]
     Active Substance: LEVOTHYROXINE SODIUM
     Indication: THYROID DISORDER
     Route: 048
     Dates: start: 20170401, end: 20171002

REACTIONS (14)
  - Amnesia [Recovering/Resolving]
  - Headache [Not Recovered/Not Resolved]
  - Insomnia [Recovering/Resolving]
  - Depression [Unknown]
  - Blood thyroid stimulating hormone increased [Not Recovered/Not Resolved]
  - Memory impairment [None]
  - Weight increased [Unknown]
  - Muscle disorder [Recovering/Resolving]
  - Asthenia [Unknown]
  - Gait disturbance [Unknown]
  - Diffuse alopecia [Unknown]
  - Sleep disorder [Unknown]
  - Myalgia [Not Recovered/Not Resolved]
  - Somnolence [Unknown]

NARRATIVE: CASE EVENT DATE: 201705
